FAERS Safety Report 10449528 (Version 1)
Quarter: 2014Q3

REPORT INFORMATION
  Report Type: Spontaneous
  Country: US (occurrence: None)
  Receive Date: 20140911
  Receipt Date: 20140911
  Transmission Date: 20150326
  Serious: No
  Sender: FDA-Public Use
  Company Number: None

PATIENT

DRUGS (2)
  1. DULOXETINE HCL DULOXETINE [Suspect]
     Active Substance: DULOXETINE HYDROCHLORIDE
  2. DEXILANT [Suspect]
     Active Substance: DEXLANSOPRAZOLE

REACTIONS (3)
  - Drug dispensing error [None]
  - Wrong drug administered [None]
  - Product container issue [None]
